FAERS Safety Report 6830591-2 (Version None)
Quarter: 2010Q3

REPORT INFORMATION
  Report Type: 
  Country: None (occurrence: None)
  Receive Date: 20100706
  Receipt Date: 20100625
  Transmission Date: 20110219
  Serious: Yes (Death, Hospitalization)
  Sender: FDA-Public Use
  Company Number: 2010AC000031

PATIENT
  Age: 63 Year
  Sex: Male

DRUGS (38)
  1. DIGOXIN [Suspect]
     Dosage: 0.125 MG; QD; PO
     Route: 048
     Dates: start: 20000301
  2. DIGOXIN [Suspect]
     Dosage: 0.25 MG; PO
     Route: 048
     Dates: start: 19990701, end: 19991101
  3. DIGOXIN [Suspect]
     Dosage: .125 MG; PO
     Route: 048
     Dates: start: 19991101, end: 20060101
  4. DIGOXIN [Suspect]
     Dates: end: 19990701
  5. DIGOXIN [Suspect]
     Indication: CARDIAC FAILURE CONGESTIVE
     Dosage: 0.125 MG; QD; PO
     Route: 048
     Dates: start: 19971209
  6. LOVENOX [Concomitant]
  7. EFFEXOR [Concomitant]
  8. INSULIN [Concomitant]
  9. ASPIRIN [Concomitant]
  10. COLACE [Concomitant]
  11. PROTONIX [Concomitant]
  12. LASIX [Concomitant]
  13. NEURONTIN [Concomitant]
  14. LISXNOPRIL [Concomitant]
  15. ALLOPURINOL [Concomitant]
  16. COREG [Concomitant]
  17. SYNTHROID [Concomitant]
  18. VICODIN [Concomitant]
  19. VANCOMYCIN [Concomitant]
  20. TOPROL-XL [Concomitant]
  21. AMARYL [Concomitant]
  22. COUMADIN [Concomitant]
  23. ZAROXOLYN [Concomitant]
  24. DEMADEX [Concomitant]
  25. ZESTRIL [Concomitant]
  26. ISORDIL [Concomitant]
  27. COLCHICINE [Concomitant]
  28. CELEBREX [Concomitant]
  29. METOPROLOL [Concomitant]
  30. AMIODARONE HCL [Concomitant]
  31. SPIRONOLACTONE [Concomitant]
  32. ISOSORBIE [Concomitant]
  33. POTASSIUM CHLORIDE [Concomitant]
  34. DOXYCYCLIN [Concomitant]
  35. LOPRESSOR [Concomitant]
  36. LEVAQUIN [Concomitant]
  37. ZAROXOLY [Concomitant]
  38. OXYGEN [Concomitant]

REACTIONS (87)
  - ACTIVITIES OF DAILY LIVING IMPAIRED [None]
  - ANAEMIA [None]
  - APATHY [None]
  - ARTHRALGIA [None]
  - ARTHRITIS [None]
  - ATRIAL FIBRILLATION [None]
  - BACTERIAL INFECTION [None]
  - BLOOD CHOLESTEROL INCREASED [None]
  - BLOOD GLUCOSE INCREASED [None]
  - BLOOD PRESSURE INCREASED [None]
  - BRONCHITIS [None]
  - CARDIAC FAILURE CONGESTIVE [None]
  - CELLULITIS [None]
  - CONDITION AGGRAVATED [None]
  - CONGESTIVE CARDIOMYOPATHY [None]
  - CORONARY ARTERY INSUFFICIENCY [None]
  - COUGH [None]
  - CRYING [None]
  - DEPRESSION [None]
  - DERMAL CYST [None]
  - DEVICE RELATED INFECTION [None]
  - DIABETES MELLITUS [None]
  - DIABETIC FOOT [None]
  - DIABETIC NEUROPATHY [None]
  - DIALYSIS [None]
  - DISTURBANCE IN ATTENTION [None]
  - DIZZINESS [None]
  - DYSGEUSIA [None]
  - DYSPNOEA [None]
  - DYSPNOEA PAROXYSMAL NOCTURNAL [None]
  - DYSURIA [None]
  - ECCHYMOSIS [None]
  - ECONOMIC PROBLEM [None]
  - EMOTIONAL DISORDER [None]
  - EPIDIDYMITIS [None]
  - ERYTHEMA [None]
  - FATIGUE [None]
  - FREQUENT BOWEL MOVEMENTS [None]
  - GOUT [None]
  - HAEMATOMA [None]
  - HOT FLUSH [None]
  - HYPERKALAEMIA [None]
  - HYPOAESTHESIA [None]
  - HYPOTHYROIDISM [None]
  - IMPLANT SITE DISCHARGE [None]
  - INSOMNIA [None]
  - ISCHAEMIC CARDIOMYOPATHY [None]
  - JOINT INJURY [None]
  - LETHARGY [None]
  - LIPOMA [None]
  - LUNG INFILTRATION [None]
  - MEDICAL DEVICE COMPLICATION [None]
  - MYALGIA [None]
  - NAIL DISCOLOURATION [None]
  - NAUSEA [None]
  - NEUROPATHY PERIPHERAL [None]
  - NOCTURNAL DYSPNOEA [None]
  - OEDEMA PERIPHERAL [None]
  - ORCHITIS [None]
  - PAIN [None]
  - PAIN IN EXTREMITY [None]
  - PALPITATIONS [None]
  - PANCYTOPENIA [None]
  - PARAESTHESIA [None]
  - PNEUMONIA [None]
  - POOR QUALITY SLEEP [None]
  - PRODUCTIVE COUGH [None]
  - PYREXIA [None]
  - RALES [None]
  - RECTAL HAEMORRHAGE [None]
  - REFUSAL OF TREATMENT BY PATIENT [None]
  - RENAL FAILURE [None]
  - RENAL FAILURE CHRONIC [None]
  - SEPSIS [None]
  - SKIN DISCOLOURATION [None]
  - SKIN ULCER [None]
  - SPEECH DISORDER [None]
  - SPUTUM DISCOLOURED [None]
  - TREATMENT NONCOMPLIANCE [None]
  - TREMOR [None]
  - UNEVALUABLE EVENT [None]
  - UROSEPSIS [None]
  - VENOUS INSUFFICIENCY [None]
  - VENTRICULAR TACHYCARDIA [None]
  - VISUAL IMPAIRMENT [None]
  - WEIGHT INCREASED [None]
  - WHITE BLOOD CELL COUNT DECREASED [None]
